FAERS Safety Report 9864205 (Version 2)
Quarter: 2014Q1

REPORT INFORMATION
  Report Type: Report from Study
  Country: JP (occurrence: JP)
  Receive Date: 20140203
  Receipt Date: 20140207
  Transmission Date: 20141002
  Serious: Yes (Death)
  Sender: FDA-Public Use
  Company Number: JP-B.I. PHARMACEUTICALS,INC./RIDGEFIELD-2014-BI-04778NB

PATIENT
  Sex: Female
  Weight: 43.7 kg

DRUGS (6)
  1. PRAZAXA [Suspect]
     Indication: CEREBROVASCULAR ACCIDENT PROPHYLAXIS
     Dosage: 220 MG
     Route: 048
     Dates: start: 20131005, end: 20131010
  2. TAKEPRON / LANSOPRAZOLE [Concomitant]
     Indication: PROPHYLAXIS
     Dosage: 15 MG
     Route: 048
  3. LASIX / FUROSEMIDE [Concomitant]
     Dosage: 40 MG
     Route: 048
  4. RIMATIL / BUCILLAMINE [Concomitant]
     Dosage: 150 MG
     Route: 048
  5. PREDONINE / PREDNISOLONE ACETATE [Concomitant]
     Dosage: 7 MG
     Route: 048
  6. MODACIN / CEFTAZIDIME HYDRATE [Concomitant]
     Dosage: 1 G
     Route: 042
     Dates: start: 20130925, end: 20131005

REACTIONS (1)
  - Sepsis [Fatal]
